FAERS Safety Report 9809281 (Version 1)
Quarter: 2014Q1

REPORT INFORMATION
  Report Type: Spontaneous
  Country: ES (occurrence: ES)
  Receive Date: 20140110
  Receipt Date: 20140110
  Transmission Date: 20141002
  Serious: Yes (Hospitalization)
  Sender: FDA-Public Use
  Company Number: CHPA2014ES000628

PATIENT
  Age: 56 Year
  Sex: Male

DRUGS (2)
  1. SIMETHICONE [Suspect]
     Indication: ABDOMINAL DISTENSION
     Route: 048
  2. PARACETAMOL [Concomitant]
     Route: 048

REACTIONS (4)
  - Drug hypersensitivity [Unknown]
  - Urticaria [Unknown]
  - Pruritus [Unknown]
  - Erythema [Unknown]
